FAERS Safety Report 25047333 (Version 1)
Quarter: 2025Q1

REPORT INFORMATION
  Report Type: Spontaneous
  Country: AT (occurrence: AT)
  Receive Date: 20250306
  Receipt Date: 20250306
  Transmission Date: 20250409
  Serious: Yes (Death)
  Sender: PFIZER
  Company Number: AT-PFIZER INC-PV202400147487

PATIENT
  Age: 76 Year
  Sex: Male

DRUGS (1)
  1. ELREXFIO [Suspect]
     Active Substance: ELRANATAMAB-BCMM
     Indication: Plasma cell myeloma refractory
     Dates: start: 202410

REACTIONS (2)
  - General physical health deterioration [Fatal]
  - Neurological symptom [Unknown]
